FAERS Safety Report 16722189 (Version 6)
Quarter: 2020Q3

REPORT INFORMATION
  Report Type: Spontaneous
  Country: US (occurrence: US)
  Receive Date: 20190820
  Receipt Date: 20200714
  Transmission Date: 20201102
  Serious: Yes (Hospitalization, Disabling, Other)
  Sender: FDA-Public Use
  Company Number: US-PFIZER INC-2019353505

PATIENT
  Age: 66 Year
  Sex: Female
  Weight: 67.57 kg

DRUGS (18)
  1. PREGABALIN. [Concomitant]
     Active Substance: PREGABALIN
     Dosage: 25 MG, 2X/DAY
     Route: 048
  2. ROWASA [Concomitant]
     Active Substance: MESALAMINE
     Dosage: UNK, AS NEEDED
     Route: 054
  3. NALTREXONE [Concomitant]
     Active Substance: NALTREXONE
     Indication: LICHEN PLANUS
     Dosage: UNK (2 FORMED BMS/DAY)
  4. NORVASC [Concomitant]
     Active Substance: AMLODIPINE BESYLATE
     Dosage: 10 MG, DAILY
     Route: 048
  5. ACYCLOVIR [ACICLOVIR] [Concomitant]
     Active Substance: ACYCLOVIR
     Dosage: 200 MG, DAILY
  6. CIMETIDINE [Concomitant]
     Active Substance: CIMETIDINE
     Dosage: 200 MG, AS NEEDED
  7. IMODIUM A?D [Concomitant]
     Active Substance: LOPERAMIDE HYDROCHLORIDE
     Dosage: 2 MG, AS NEEDED
  8. ZOVIRAX [Concomitant]
     Active Substance: ACYCLOVIR
     Dosage: 200 MG, ALTERNATE DAY
     Route: 048
  9. LIORESAL [Concomitant]
     Active Substance: BACLOFEN
     Dosage: 10 MG, 2X/DAY
     Route: 048
  10. TYLENOL [Concomitant]
     Active Substance: ACETAMINOPHEN
     Indication: PAIN
     Dosage: 325 MG, AS NEEDED
     Route: 048
  11. KENALOG [Concomitant]
     Active Substance: TRIAMCINOLONE ACETONIDE
     Indication: RASH PRURITIC
     Dosage: 1 DF, 2X/DAY
     Route: 061
  12. VITAMIN D3 [Concomitant]
     Active Substance: CHOLECALCIFEROL
     Dosage: 2000 IU, DAILY
     Route: 048
  13. NEURONTIN [Concomitant]
     Active Substance: GABAPENTIN
     Indication: FACIAL NEURALGIA
     Dosage: 300 MG, 3X/DAY
     Route: 048
  14. APRISO [Concomitant]
     Active Substance: MESALAMINE
     Dosage: 1.5 G, 1X/DAY
  15. XELJANZ [Suspect]
     Active Substance: TOFACITINIB CITRATE
     Dosage: 5 MG, 2X/DAY
     Route: 048
     Dates: start: 201902
  16. XANAX [Concomitant]
     Active Substance: ALPRAZOLAM
     Dosage: 0.25 MG, AS NEEDED
  17. MTX [METHOTREXATE SODIUM] [Concomitant]
     Active Substance: METHOTREXATE SODIUM
     Dosage: UNK
     Dates: start: 2017, end: 201803
  18. XELJANZ [Suspect]
     Active Substance: TOFACITINIB CITRATE
     Indication: COLITIS ULCERATIVE
     Dosage: 10 MG, 2X/DAY

REACTIONS (15)
  - Haemorrhage [Unknown]
  - Chest pain [Unknown]
  - Meningitis [Unknown]
  - Peripheral swelling [Unknown]
  - Haemorrhagic stroke [Unknown]
  - Blood pressure increased [Unknown]
  - Hydrocephalus [Unknown]
  - Basal ganglia haematoma [Unknown]
  - Gait disturbance [Unknown]
  - Musculoskeletal pain [Unknown]
  - Cerebrovascular accident [Unknown]
  - Hemiplegia [Recovering/Resolving]
  - Immunosuppression [Unknown]
  - Hormone level abnormal [Unknown]
  - Cerebral ventricle dilatation [Unknown]

NARRATIVE: CASE EVENT DATE: 201912
